FAERS Safety Report 6520914-6 (Version None)
Quarter: 2009Q4

REPORT INFORMATION
  Report Type: 
  Country: None (occurrence: None)
  Receive Date: 20091229
  Receipt Date: 20091218
  Transmission Date: 20100525
  Serious: Yes (Other)
  Sender: FDA-Public Use
  Company Number: DE-PFIZER INC-2009284794

PATIENT
  Age: 68 Year
  Sex: Female
  Weight: 66 kg

DRUGS (4)
  1. SUNITINIB MALATE [Suspect]
     Indication: METASTATIC RENAL CELL CARCINOMA
     Dosage: 50 MG, 1X/DAY
     Route: 048
     Dates: start: 20070703, end: 20071215
  2. ESTRADIOL [Concomitant]
     Indication: HORMONE LEVEL ABNORMAL
  3. DYDROGESTERONE [Concomitant]
     Indication: HORMONE LEVEL ABNORMAL
  4. OMEPRAZOL [Concomitant]
     Indication: HORMONE LEVEL ABNORMAL
     Dosage: 40 MG, UNK

REACTIONS (2)
  - CIRCULATORY COLLAPSE [None]
  - DEHYDRATION [None]
